FAERS Safety Report 7146452-8 (Version None)
Quarter: 2010Q4

REPORT INFORMATION
  Report Type: 
  Country: None (occurrence: None)
  Receive Date: 20101208
  Receipt Date: 20101129
  Transmission Date: 20110411
  Serious: Yes (Hospitalization, Other)
  Sender: FDA-Public Use
  Company Number: BR-ABBOTT-10P-020-0688754-00

PATIENT
  Sex: Female
  Weight: 80 kg

DRUGS (9)
  1. HUMIRA [Suspect]
     Indication: CROHN'S DISEASE
     Dosage: INDUCTION DOSE
     Route: 058
     Dates: start: 20091001
  2. HUMIRA [Suspect]
     Dosage: INDUCTION DOSE
     Route: 058
  3. HUMIRA [Suspect]
     Route: 058
  4. HUMIRA [Suspect]
     Route: 058
     Dates: start: 20101101
  5. AZATHIOPRINE [Concomitant]
     Indication: CROHN'S DISEASE
     Route: 048
     Dates: start: 20090301, end: 20100701
  6. PREDNISONE [Concomitant]
     Indication: CROHN'S DISEASE
     Route: 048
     Dates: start: 20090101
  7. PREDNISONE [Concomitant]
     Indication: ANAL FISSURE
     Route: 048
     Dates: start: 20100901, end: 20101128
  8. METOPROLOL SUCCINATE [Concomitant]
     Indication: HYPERTENSION
     Route: 047
     Dates: start: 20080101
  9. ZINC [Concomitant]
     Indication: BLOOD ZINC ABNORMAL
     Route: 048
     Dates: start: 20101101

REACTIONS (8)
  - ANAL FISSURE [None]
  - ANAL STENOSIS [None]
  - BLOOD CALCIUM ABNORMAL [None]
  - BLOOD ZINC DECREASED [None]
  - RECTAL POLYP [None]
  - SKIN TEST POSITIVE [None]
  - VITAMIN D ABNORMAL [None]
  - WEIGHT INCREASED [None]
